FAERS Safety Report 18186634 (Version 1)
Quarter: 2020Q3

REPORT INFORMATION
  Report Type: Spontaneous
  Country: US (occurrence: US)
  Receive Date: 20200824
  Receipt Date: 20200824
  Transmission Date: 20201103
  Serious: Yes (Hospitalization)
  Sender: FDA-Public Use
  Company Number: None

PATIENT
  Age: 58 Year
  Sex: Female

DRUGS (7)
  1. METFORMIN [Concomitant]
     Active Substance: METFORMIN HYDROCHLORIDE
     Dates: start: 20180322
  2. TYLENOL [Concomitant]
     Active Substance: ACETAMINOPHEN
     Dates: start: 20200821
  3. CALCIUM [Concomitant]
     Active Substance: CALCIUM
     Dates: start: 20180322
  4. HUMIRA [Suspect]
     Active Substance: ADALIMUMAB
     Indication: RHEUMATOID ARTHRITIS
     Dosage: ?          OTHER FREQUENCY:EVERY OTHER WEEK;?
     Route: 058
     Dates: start: 20190517
  5. OXYCODONE [Concomitant]
     Active Substance: OXYCODONE
     Dates: start: 20200821
  6. VITAMIN D [Concomitant]
     Active Substance: VITAMIN D NOS
     Dates: start: 20180322
  7. MULTI?VIT [Concomitant]
     Active Substance: VITAMINS
     Dates: start: 20180322

REACTIONS (2)
  - Therapy interrupted [None]
  - Arthritis [None]

NARRATIVE: CASE EVENT DATE: 20200813
